FAERS Safety Report 25797659 (Version 2)
Quarter: 2025Q4

REPORT INFORMATION
  Report Type: Spontaneous
  Country: US (occurrence: US)
  Receive Date: 20250912
  Receipt Date: 20251015
  Transmission Date: 20260118
  Serious: Yes (Other)
  Sender: BRISTOL-MYERS SQUIBB COMPANY
  Company Number: US-BRISTOL-MYERS SQUIBB COMPANY-2025-126155

PATIENT
  Age: 87 Year
  Sex: Female
  Weight: 63.96 kg

DRUGS (5)
  1. POMALYST [Suspect]
     Active Substance: POMALIDOMIDE
     Indication: Plasma cell myeloma
     Dosage: BY MOUTH ONCE A DAY ON DAYS 1-21 EVERY 28 DAYS
     Dates: start: 20250222
  2. KYPROLIS [Concomitant]
     Active Substance: CARFILZOMIB
     Indication: Plasma cell myeloma
     Dosage: ON DAY 1, 8,15 EVERY 28 DAYS
     Dates: start: 20240530
  3. KYPROLIS [Concomitant]
     Active Substance: CARFILZOMIB
     Dosage: ON DAY 1, 8,15 EVERY 28 DAYS
     Dates: start: 20250911
  4. DARZALEX FASPRO [Concomitant]
     Active Substance: DARATUMUMAB\HYALURONIDASE-FIHJ
     Indication: Plasma cell myeloma
     Dosage: D1 Q28 (ONCE EVERY 28 DAYS)
     Dates: start: 20240530
  5. DARZALEX FASPRO [Concomitant]
     Active Substance: DARATUMUMAB\HYALURONIDASE-FIHJ
     Dosage: D1 Q28 (ONCE EVERY 28 DAYS)
     Dates: start: 20250911

REACTIONS (1)
  - Neutropenia [Recovered/Resolved]

NARRATIVE: CASE EVENT DATE: 20250828
